FAERS Safety Report 7292029-3 (Version None)
Quarter: 2011Q1

REPORT INFORMATION
  Report Type: 
  Country: None (occurrence: None)
  Receive Date: 20110215
  Receipt Date: 20110204
  Transmission Date: 20110831
  Serious: Yes (Hospitalization)
  Sender: FDA-Public Use
  Company Number: US-BIOGENIDEC-2011BI004307

PATIENT
  Age: 51 Year
  Sex: Female
  Weight: 122 kg

DRUGS (2)
  1. TYSABRI [Suspect]
     Indication: MULTIPLE SCLEROSIS
     Route: 042
     Dates: start: 20061001
  2. CELEXA [Concomitant]
     Indication: DEPRESSION

REACTIONS (6)
  - MUSCULOSKELETAL DISORDER [None]
  - POLLAKIURIA [None]
  - WEIGHT INCREASED [None]
  - MOOD ALTERED [None]
  - FATIGUE [None]
  - MULTIPLE SCLEROSIS RELAPSE [None]
